FAERS Safety Report 19207286 (Version 3)
Quarter: 2023Q4

REPORT INFORMATION
  Report Type: Spontaneous
  Country: US (occurrence: US)
  Receive Date: 20210503
  Receipt Date: 20231025
  Transmission Date: 20240110
  Serious: Yes (Death, Hospitalization)
  Sender: FDA-Public Use
  Company Number: US-PFIZER INC-2021152634

PATIENT
  Age: 77 Year
  Sex: Male

DRUGS (2)
  1. VYNDAMAX [Suspect]
     Active Substance: TAFAMIDIS
     Dosage: 61 MG
  2. ATORVASTATIN [Concomitant]
     Active Substance: ATORVASTATIN
     Indication: Blood cholesterol
     Dosage: 25 MG, 1X/DAY
     Route: 048

REACTIONS (3)
  - Cardiac disorder [Fatal]
  - Malaise [Unknown]
  - Abdominal pain upper [Unknown]
